FAERS Safety Report 5447157-1 (Version None)
Quarter: 2007Q3

REPORT INFORMATION
  Report Type: 
  Country: None (occurrence: None)
  Receive Date: 20070910
  Receipt Date: 20070906
  Transmission Date: 20080115
  Serious: Yes (Death)
  Sender: FDA-Public Use
  Company Number: PHBS2007BR14621

PATIENT
  Age: 93 Year
  Sex: Female
  Weight: 90 kg

DRUGS (1)
  1. FORASEQ [Suspect]
     Indication: DYSPNOEA
     Dosage: 12/400 UG, BID

REACTIONS (1)
  - DEATH [None]
